FAERS Safety Report 5025070-1 (Version None)
Quarter: 2006Q2

REPORT INFORMATION
  Report Type: 
  Country: None (occurrence: None)
  Receive Date: 20060613
  Receipt Date: 20060217
  Transmission Date: 20061013
  Serious: Yes (Death)
  Sender: FDA-Public Use
  Company Number: US-BRISTOL-MYERS SQUIBB COMPANY-13288766

PATIENT
  Age: 70 Year
  Sex: Female
  Weight: 93 kg

DRUGS (19)
  1. COUMADIN [Suspect]
     Dates: start: 19860101
  2. CARTIA XT [Concomitant]
  3. ZOCOR [Concomitant]
  4. NEXIUM [Concomitant]
  5. ALLEGRA [Concomitant]
  6. BUMEX [Concomitant]
  7. NOLVADEX [Concomitant]
  8. METFORMIN HYDROCHLORIDE [Concomitant]
  9. CYMBALTA [Concomitant]
  10. PREDNISONE [Concomitant]
  11. POTASSIUM CHLORIDE [Concomitant]
  12. ATENOLOL [Concomitant]
  13. DIGOXIN [Concomitant]
  14. CLONAZEPAM [Concomitant]
  15. CARAFATE [Concomitant]
  16. ALBUTEROL [Concomitant]
  17. VALIUM [Concomitant]
  18. SPIRIVA [Concomitant]
  19. TAZIDIME [Concomitant]

REACTIONS (1)
  - PNEUMONIA [None]
